FAERS Safety Report 4931781-6 (Version None)
Quarter: 2006Q1

REPORT INFORMATION
  Report Type: 
  Country: None (occurrence: None)
  Receive Date: 20060303
  Receipt Date: 20051013
  Transmission Date: 20060701
  Serious: Yes (Other)
  Sender: FDA-Public Use
  Company Number: 200512969JP

PATIENT
  Age: 57 Year
  Sex: Female
  Weight: 54 kg

DRUGS (14)
  1. ARAVA [Suspect]
     Indication: RHEUMATOID ARTHRITIS
     Route: 048
     Dates: start: 20040623, end: 20040720
  2. ARAVA [Suspect]
     Route: 048
     Dates: start: 20040721, end: 20040817
  3. ARAVA [Suspect]
     Route: 048
     Dates: start: 20041005, end: 20041129
  4. ARAVA [Suspect]
     Route: 048
     Dates: start: 20041130, end: 20041206
  5. ARAVA [Suspect]
     Route: 048
     Dates: start: 20041228
  6. ENDOXAN [Concomitant]
     Indication: RHEUMATOID ARTHRITIS
     Route: 048
     Dates: start: 20020312, end: 20040622
  7. PREDONINE [Concomitant]
     Indication: RHEUMATOID ARTHRITIS
     Route: 048
  8. VOLTAREN [Concomitant]
     Indication: RHEUMATOID ARTHRITIS
     Route: 048
  9. MARZULENE S [Concomitant]
     Indication: GASTRITIS
     Route: 048
  10. MARZULENE S [Concomitant]
     Indication: PROPHYLAXIS
     Route: 048
  11. VOLTAREN [Concomitant]
     Indication: RHEUMATOID ARTHRITIS
     Route: 054
     Dates: start: 20040827
  12. PL GRAN. [Concomitant]
     Indication: UPPER RESPIRATORY TRACT INFLAMMATION
     Route: 048
     Dates: start: 20041102, end: 20041109
  13. MEDICON [Concomitant]
     Indication: UPPER RESPIRATORY TRACT INFLAMMATION
     Route: 048
     Dates: start: 20041102, end: 20041109
  14. QUESTRAN [Concomitant]
     Route: 048
     Dates: start: 20040817, end: 20040828

REACTIONS (7)
  - ALANINE AMINOTRANSFERASE INCREASED [None]
  - ASPARTATE AMINOTRANSFERASE INCREASED [None]
  - BLOOD ALKALINE PHOSPHATASE INCREASED [None]
  - BLOOD LACTATE DEHYDROGENASE INCREASED [None]
  - GAMMA-GLUTAMYLTRANSFERASE INCREASED [None]
  - HEPATIC FUNCTION ABNORMAL [None]
  - UPPER RESPIRATORY TRACT INFECTION [None]
